FAERS Safety Report 19245464 (Version 1)
Quarter: 2021Q2

REPORT INFORMATION
  Report Type: Report from Study
  Country: US (occurrence: US)
  Receive Date: 20210512
  Receipt Date: 20210512
  Transmission Date: 20210717
  Serious: Yes (Hospitalization)
  Sender: FDA-Public Use
  Company Number: US-UCBSA-2021021232

PATIENT
  Sex: Female

DRUGS (1)
  1. BRIVARACETAM [Suspect]
     Active Substance: BRIVARACETAM
     Indication: SEIZURE
     Dosage: 100 MILLIGRAM, 2X/DAY (BID)

REACTIONS (7)
  - Confusional state [Recovering/Resolving]
  - Blood oestrogen increased [Not Recovered/Not Resolved]
  - Aphasia [Recovering/Resolving]
  - Hallucination, auditory [Recovering/Resolving]
  - Seizure [Not Recovered/Not Resolved]
  - Abnormal behaviour [Recovering/Resolving]
  - Product dose omission issue [Unknown]
